FAERS Safety Report 5249084-1 (Version None)
Quarter: 2007Q1

REPORT INFORMATION
  Report Type: 
  Country: None (occurrence: None)
  Receive Date: 20070222
  Receipt Date: 20070207
  Transmission Date: 20070707
  Serious: Yes (Death)
  Sender: FDA-Public Use
  Company Number: 010925

PATIENT
  Age: 6 Year
  Sex: Male

DRUGS (1)
  1. CLARAVIS [Suspect]
     Indication: BRAIN STEM GLIOMA
     Dosage: 60 MG, BID, ORAL
     Route: 048
     Dates: start: 20060524, end: 20060726

REACTIONS (1)
  - DEATH [None]
